FAERS Safety Report 21635483 (Version 1)
Quarter: 2022Q4

REPORT INFORMATION
  Report Type: Report from Study
  Country: HN (occurrence: HN)
  Receive Date: 20221123
  Receipt Date: 20221123
  Transmission Date: 20230113
  Serious: Yes (Disabling, Other)
  Sender: FDA-Public Use
  Company Number: HN-MYLANLABS-2022M1130545

PATIENT
  Age: 74 Year
  Sex: Female
  Weight: 45.35 kg

DRUGS (1)
  1. LIPITOR [Suspect]
     Active Substance: ATORVASTATIN CALCIUM
     Indication: Blood pressure abnormal
     Dosage: 40 MILLIGRAM, QD (0.5 TABLET DAILY)
     Route: 048
     Dates: start: 20191117

REACTIONS (3)
  - Auditory disorder [Not Recovered/Not Resolved]
  - Myocardial infarction [Not Recovered/Not Resolved]
  - Wrong technique in product usage process [Unknown]

NARRATIVE: CASE EVENT DATE: 20191117
